FAERS Safety Report 8257279-8 (Version None)
Quarter: 2012Q1

REPORT INFORMATION
  Report Type: 
  Country: None (occurrence: None)
  Receive Date: 20120330
  Receipt Date: 20120213
  Transmission Date: 20120608
  Serious: Yes (Other)
  Sender: FDA-Public Use
  Company Number: SE-GDP-12413077

PATIENT
  Sex: Male

DRUGS (1)
  1. METVIX (METHYL AMINOLEVULINATE HYDROCHLORIDE) 16 % [Suspect]
     Indication: BASAL CELL CARCINOMA
     Dosage: (TOPICAL)
     Route: 061
     Dates: start: 20120203, end: 20120203

REACTIONS (2)
  - HERPES ZOSTER [None]
  - INFECTION REACTIVATION [None]
